FAERS Safety Report 25239842 (Version 1)
Quarter: 2025Q2

REPORT INFORMATION
  Report Type: Spontaneous
  Country: CZ (occurrence: CZ)
  Receive Date: 20250425
  Receipt Date: 20250425
  Transmission Date: 20250717
  Serious: Yes (Life-Threatening, Hospitalization, Other)
  Sender: MYLAN
  Company Number: None

PATIENT
  Age: 18 Year
  Sex: Female
  Weight: 58 kg

DRUGS (1)
  1. SUMATRIPTAN [Suspect]
     Active Substance: SUMATRIPTAN
     Indication: Migraine
     Dates: start: 20250404, end: 20250404

REACTIONS (8)
  - Vertigo [Recovered/Resolved]
  - Localised oedema [Recovered/Resolved]
  - Head discomfort [Recovered/Resolved]
  - Pruritus [Recovered/Resolved]
  - Tongue pruritus [Recovered/Resolved]
  - Myalgia [Recovered/Resolved]
  - Dyspnoea [Recovered/Resolved]
  - Hypersensitivity [Recovered/Resolved]

NARRATIVE: CASE EVENT DATE: 20250404
